FAERS Safety Report 4959285-5 (Version None)
Quarter: 2006Q1

REPORT INFORMATION
  Report Type: 
  Country: None (occurrence: None)
  Receive Date: 20060130
  Receipt Date: 20050824
  Transmission Date: 20060701
  Serious: Yes (Hospitalization, Other)
  Sender: FDA-Public Use
  Company Number: 142957USA

PATIENT
  Sex: Female

DRUGS (11)
  1. COPAXONE [Suspect]
     Indication: MULTIPLE SCLEROSIS
     Dates: start: 20050420, end: 20050816
  2. COPAXONE [Suspect]
     Indication: MULTIPLE SCLEROSIS
     Dosage: 20 MILLIGRAM SUBCUTANEOUS
     Route: 058
     Dates: start: 20050909
  3. ASCORBIC ACID [Concomitant]
  4. VITAMIN B COMPLEX CAP [Concomitant]
  5. CALCIUM GLUCONATE [Concomitant]
  6. PROVIGIL [Concomitant]
  7. LUNESTA [Concomitant]
  8. ATIVAN [Concomitant]
  9. MAGNESIUM [Concomitant]
  10. POTASSIUM [Concomitant]
  11. HALCION [Concomitant]

REACTIONS (2)
  - CONVULSION [None]
  - PARALYSIS [None]
